FAERS Safety Report 7792103-9 (Version None)
Quarter: 2011Q3

REPORT INFORMATION
  Report Type: 
  Country: None (occurrence: None)
  Receive Date: 20110930
  Receipt Date: 20110930
  Transmission Date: 20111222
  Serious: No
  Sender: FDA-Public Use
  Company Number: None

PATIENT
  Sex: Female
  Weight: 59.8748 kg

DRUGS (1)
  1. ROZEREM [Suspect]
     Dosage: ONE EVERY NIGHT
     Dates: start: 20110814

REACTIONS (3)
  - PSYCHOMOTOR HYPERACTIVITY [None]
  - INSOMNIA [None]
  - PALPITATIONS [None]
